FAERS Safety Report 11451837 (Version 1)
Quarter: 2015Q3

REPORT INFORMATION
  Report Type: Spontaneous
  Country: US (occurrence: None)
  Receive Date: 20150902
  Receipt Date: 20150902
  Transmission Date: 20151125
  Serious: Yes (Disabling)
  Sender: FDA-Public Use
  Company Number: None

PATIENT
  Age: 51 Year
  Sex: Female
  Weight: 79.38 kg

DRUGS (1)
  1. GENERIC HYDROCORTISONE 10 MG QUALIFEST [Suspect]
     Active Substance: HYDROCORTISONE
     Indication: ADDISON^S DISEASE
     Dosage: 10 MG?1 AT 6+9AM N NOON?TAKEN BY MOUTH
     Route: 048
     Dates: start: 20150401, end: 20150901

REACTIONS (2)
  - Condition aggravated [None]
  - Addison^s disease [None]
